FAERS Safety Report 9993954 (Version 2)
Quarter: 2014Q1

REPORT INFORMATION
  Report Type: Spontaneous
  Country: US (occurrence: US)
  Receive Date: 20140310
  Receipt Date: 20140310
  Transmission Date: 20141002
  Serious: No
  Sender: FDA-Public Use
  Company Number: US-AMGEN-USASP2013062851

PATIENT
  Age: 60 Year
  Sex: Female
  Weight: 97.5 kg

DRUGS (7)
  1. SENSIPAR [Suspect]
     Indication: HYPERPARATHYROIDISM SECONDARY
     Dosage: 30 MG, QD
     Route: 048
     Dates: start: 20130819, end: 20130906
  2. LORAZEPAM [Concomitant]
     Dosage: 1 MG, AS NECESSARY
     Route: 048
     Dates: start: 20120402
  3. HYDRALAZINE [Concomitant]
     Dosage: 25 MG, BID
     Route: 048
     Dates: start: 20130508
  4. FLEXINOL [Concomitant]
     Dosage: 10 MG, AS NECESSARY
     Route: 048
     Dates: start: 20120402
  5. KLONOPIN [Concomitant]
     Dosage: 0.5 MG, UNK
     Route: 048
     Dates: start: 20120402
  6. LEVOTHROID [Concomitant]
     Dosage: 30 MG, UNK
     Route: 048
     Dates: start: 20120402
  7. RENAGEL                            /01459901/ [Concomitant]
     Dosage: 800 MG, UNK
     Route: 048

REACTIONS (3)
  - Somnolence [Unknown]
  - Fatigue [Unknown]
  - Mobility decreased [Unknown]
